FAERS Safety Report 6177470-4 (Version None)
Quarter: 2009Q2

REPORT INFORMATION
  Report Type: 
  Country: None (occurrence: None)
  Receive Date: 20090501
  Receipt Date: 20090501
  Transmission Date: 20091009
  Serious: Yes (Life-Threatening)
  Sender: FDA-Public Use
  Company Number: None

PATIENT
  Age: 77 Year
  Sex: Male
  Weight: 89 kg

DRUGS (6)
  1. HYDROMORPHONE HCL [Suspect]
     Indication: PAIN
     Dosage: 0/0.4/15 PCA
     Dates: start: 20090206
  2. HEPARIN [Concomitant]
  3. METOCLOPRAMIDE [Concomitant]
  4. METOPROLOL [Concomitant]
  5. RANITIDINE [Concomitant]
  6. DILTIAZEM [Concomitant]

REACTIONS (2)
  - MENTAL STATUS CHANGES [None]
  - OXYGEN SATURATION DECREASED [None]
